FAERS Safety Report 4589834-0 (Version None)
Quarter: 2005Q1

REPORT INFORMATION
  Report Type: 
  Country: None (occurrence: None)
  Receive Date: 20050125
  Receipt Date: 20040923
  Transmission Date: 20050727
  Serious: No
  Sender: FDA-Public Use
  Company Number: USA040874706

PATIENT
  Age: 70 Year
  Sex: Female
  Weight: 56 kg

DRUGS (2)
  1. FORTEO [Suspect]
     Indication: OSTEOPOROSIS
     Dosage: 20 UG/1 DAY
     Dates: start: 20040701
  2. SYNTHROID [Concomitant]

REACTIONS (6)
  - BALANCE DISORDER [None]
  - FEELING ABNORMAL [None]
  - HEART RATE INCREASED [None]
  - MYALGIA [None]
  - NERVOUSNESS [None]
  - TREMOR [None]
